FAERS Safety Report 7782576-X (Version None)
Quarter: 2011Q3

REPORT INFORMATION
  Report Type: 
  Country: None (occurrence: None)
  Receive Date: 20110927
  Receipt Date: 20110927
  Transmission Date: 20111222
  Serious: No
  Sender: FDA-Public Use
  Company Number: None

PATIENT
  Age: 51 Year
  Sex: Male
  Weight: 41.3 kg

DRUGS (5)
  1. TRUVADA [Suspect]
     Indication: HIV INFECTION
     Dosage: TENOFOVIR 300MG PO DAILY
     Route: 048
     Dates: start: 20101101
  2. REYATAZ [Concomitant]
  3. NOVIS [Concomitant]
  4. TRUVADA [Concomitant]
  5. TRAMADOL [Concomitant]

REACTIONS (1)
  - FANCONI SYNDROME ACQUIRED [None]
